FAERS Safety Report 4806909-9 (Version None)
Quarter: 2005Q4

REPORT INFORMATION
  Report Type: 
  Country: None (occurrence: None)
  Receive Date: 20051020
  Receipt Date: 20051020
  Transmission Date: 20060501
  Serious: Yes (Hospitalization)
  Sender: FDA-Public Use
  Company Number: None

PATIENT
  Age: 64 Year
  Sex: Male
  Weight: 80.9 kg

DRUGS (20)
  1. ALBUTEROL [Suspect]
  2. HALOPERIDOL [Concomitant]
  3. INSULIN REG HUMAN 100 U/ML INJ NOVOLIN R [Concomitant]
  4. PREDNISONE [Concomitant]
  5. FUROSEMIDE [Concomitant]
  6. HALOPERIDOL [Concomitant]
  7. THEOPHYLLINE [Concomitant]
  8. ACETAMINOPHEN W/ CODEINE NO. 3 [Concomitant]
  9. ACETAMINOPHEN (INPT-UD) [Concomitant]
  10. IPRATROPIUM BROMIDE [Concomitant]
  11. ALBUTEROL [Concomitant]
  12. OMEPRAZOLE [Concomitant]
  13. SIMVASTATIN [Concomitant]
  14. FORMOTEROL FUMARATE [Concomitant]
  15. ASPIRIN [Concomitant]
  16. NITROGLYCERIN [Concomitant]
  17. MAGNESIUM HYDROXIDE TAB [Concomitant]
  18. SODIUM CHL FLUSH [Concomitant]
  19. ATENOLOL [Concomitant]
  20. CEFTRIAXONE [Concomitant]

REACTIONS (1)
  - TACHYCARDIA [None]
